FAERS Safety Report 6547996-X (Version None)
Quarter: 2010Q1

REPORT INFORMATION
  Report Type: 
  Country: None (occurrence: None)
  Receive Date: 20100124
  Receipt Date: 20091215
  Transmission Date: 20100710
  Serious: No
  Sender: FDA-Public Use
  Company Number: US-ALEXION-A200901089

PATIENT

DRUGS (2)
  1. SOLIRIS [Suspect]
     Indication: PAROXYSMAL NOCTURNAL HAEMOGLOBINURIA
     Dosage: 600 MG, QWK X 4
     Dates: start: 20081218, end: 20090107
  2. SOLIRIS [Suspect]
     Dosage: 900 MG, Q2WK
     Dates: start: 20090101

REACTIONS (13)
  - CANDIDIASIS [None]
  - INFECTION [None]
  - INSOMNIA [None]
  - IRON OVERLOAD [None]
  - MALAISE [None]
  - MUSCLE SPASMS [None]
  - NAUSEA [None]
  - PYREXIA [None]
  - SKIN DISCOLOURATION [None]
  - SKIN STRIAE [None]
  - URINARY TRACT INFECTION [None]
  - VOMITING [None]
  - WHITE BLOOD CELL COUNT DECREASED [None]
